FAERS Safety Report 8064479-9 (Version None)
Quarter: 2012Q1

REPORT INFORMATION
  Report Type: 
  Country: None (occurrence: None)
  Receive Date: 20120123
  Receipt Date: 20120112
  Transmission Date: 20120608
  Serious: Yes (Other)
  Sender: FDA-Public Use
  Company Number: US-BAXTER-2012BH001045

PATIENT
  Sex: Female

DRUGS (3)
  1. INFUVITE ADULT [Suspect]
     Route: 065
  2. INFUVITE ADULT [Suspect]
     Indication: PRODUCT USED FOR UNKNOWN INDICATION
     Route: 065
  3. LACTATED RINGER'S [Suspect]
     Indication: PRODUCT USED FOR UNKNOWN INDICATION
     Route: 065

REACTIONS (3)
  - MATERNAL EXPOSURE DURING PREGNANCY [None]
  - ANAPHYLACTIC REACTION [None]
  - DEHYDRATION [None]
